FAERS Safety Report 8452598-4 (Version None)
Quarter: 2012Q2

REPORT INFORMATION
  Report Type: 
  Country: None (occurrence: None)
  Receive Date: 20120620
  Receipt Date: 20120419
  Transmission Date: 20120825
  Serious: No
  Sender: FDA-Public Use
  Company Number: US-VERTEX PHARMACEUTICALS INC.-AE-2012-005642

PATIENT
  Sex: Female
  Weight: 70.824 kg

DRUGS (4)
  1. LEVOXYL [Concomitant]
     Indication: HYPOTHYROIDISM
     Route: 048
  2. PEGASYS [Concomitant]
     Indication: HEPATITIS C
     Dates: start: 20120319
  3. INCIVEK [Suspect]
     Indication: HEPATITIS C
     Route: 048
     Dates: start: 20120319
  4. RIBAVIRIN [Concomitant]
     Indication: HEPATITIS C
     Route: 048
     Dates: start: 20120319

REACTIONS (8)
  - INJECTION SITE RASH [None]
  - THYROID DISORDER [None]
  - NAUSEA [None]
  - VOMITING [None]
  - FATIGUE [None]
  - RECTAL HAEMORRHAGE [None]
  - ANORECTAL DISCOMFORT [None]
  - ANAL PRURITUS [None]
